FAERS Safety Report 8191907-0 (Version None)
Quarter: 2012Q1

REPORT INFORMATION
  Report Type: 
  Country: None (occurrence: None)
  Receive Date: 20120307
  Receipt Date: 20120228
  Transmission Date: 20120608
  Serious: Yes (Hospitalization)
  Sender: FDA-Public Use
  Company Number: PHHY2012ZA018190

PATIENT
  Age: 75 Year
  Sex: Female

DRUGS (1)
  1. ZOLEDRONOC ACID [Suspect]
     Dosage: 5 MG/100 ML
     Route: 042

REACTIONS (5)
  - ASTHENIA [None]
  - ROAD TRAFFIC ACCIDENT [None]
  - OSTEOPOROSIS [None]
  - DRUG INEFFECTIVE [None]
  - LOWER LIMB FRACTURE [None]
